FAERS Safety Report 18453917 (Version 1)
Quarter: 2020Q4

REPORT INFORMATION
  Report Type: Spontaneous
  Country: PT (occurrence: PT)
  Receive Date: 20201102
  Receipt Date: 20201102
  Transmission Date: 20210114
  Serious: Yes (Hospitalization, Other)
  Sender: FDA-Public Use
  Company Number: PT-VIIV HEALTHCARE LIMITED-PT2020GSK209315

PATIENT
  Age: 23 Year
  Sex: Female

DRUGS (3)
  1. ABACAVIR SULFATE. [Suspect]
     Active Substance: ABACAVIR SULFATE
     Indication: HIV INFECTION
     Dosage: UNK
  2. DOLUTEGRAVIR [Suspect]
     Active Substance: DOLUTEGRAVIR
     Indication: HIV INFECTION
     Dosage: UNK
  3. LAMIVUDINE. [Suspect]
     Active Substance: LAMIVUDINE
     Indication: HIV INFECTION
     Dosage: UNK

REACTIONS (14)
  - Herpes simplex [Recovering/Resolving]
  - Central nervous system vasculitis [Recovering/Resolving]
  - Cerebral artery stenosis [Recovering/Resolving]
  - Ischaemic stroke [Recovering/Resolving]
  - Aphasia [Recovering/Resolving]
  - Facial paresis [Recovering/Resolving]
  - Treatment noncompliance [Unknown]
  - Immune reconstitution inflammatory syndrome [Recovering/Resolving]
  - Cerebral ischaemia [Recovering/Resolving]
  - Infected vasculitis [Recovering/Resolving]
  - Condition aggravated [Recovering/Resolving]
  - Pleocytosis [Recovering/Resolving]
  - Hemiparesis [Recovering/Resolving]
  - Cerebral artery occlusion [Recovering/Resolving]
